FAERS Safety Report 12396586 (Version 1)
Quarter: 2016Q2

REPORT INFORMATION
  Report Type: Spontaneous
  Country: US (occurrence: US)
  Receive Date: 20160524
  Receipt Date: 20160524
  Transmission Date: 20160815
  Serious: Yes (Other)
  Sender: FDA-Public Use
  Company Number: US-009507513-1504USA010827

PATIENT
  Age: 15 Year
  Sex: Male

DRUGS (2)
  1. VANCOMYCIN [Concomitant]
     Active Substance: VANCOMYCIN
     Dosage: UNK
  2. CUBICIN [Suspect]
     Active Substance: DAPTOMYCIN
     Indication: STAPHYLOCOCCAL INFECTION
     Dosage: 6 MG/KG, UNK
     Route: 065

REACTIONS (8)
  - Antimicrobial susceptibility test resistant [Unknown]
  - Cerebellar infarction [Unknown]
  - Staphylococcal bacteraemia [Recovered/Resolved]
  - Drug ineffective for unapproved indication [Unknown]
  - Haemorrhagic cerebral infarction [Unknown]
  - Endocarditis staphylococcal [Recovered/Resolved]
  - Central nervous system infection [Recovered/Resolved]
  - Hypotension [Recovered/Resolved]
